FAERS Safety Report 4679253-0 (Version None)
Quarter: 2005Q2

REPORT INFORMATION
  Report Type: 
  Country: None (occurrence: None)
  Receive Date: 20050531
  Receipt Date: 20050531
  Transmission Date: 20051028
  Serious: Yes (Other)
  Sender: FDA-Public Use
  Company Number: None

PATIENT
  Age: 75 Year
  Sex: Male
  Weight: 68.9467 kg

DRUGS (2)
  1. DOXAZOSIN TAB 8MG  APOTEX USA [Suspect]
     Indication: BENIGN PROSTATIC HYPERPLASIA
     Dosage: 8 MG TWICE A DAY ORAL
     Route: 048
     Dates: start: 19951130, end: 20050530
  2. DOXAZOSIN TAB 8MG  APOTEX USA [Suspect]
     Indication: HYPERTENSION
     Dosage: 8 MG TWICE A DAY ORAL
     Route: 048
     Dates: start: 19951130, end: 20050530

REACTIONS (3)
  - ARTHRALGIA [None]
  - MUSCLE SPASMS [None]
  - SHOULDER PAIN [None]
